FAERS Safety Report 5716076-5 (Version None)
Quarter: 2008Q2

REPORT INFORMATION
  Report Type: 
  Country: None (occurrence: None)
  Receive Date: 20080423
  Receipt Date: 20080423
  Transmission Date: 20081010
  Serious: Yes (Other)
  Sender: FDA-Public Use
  Company Number: None

PATIENT
  Sex: Male
  Weight: 92.9874 kg

DRUGS (1)
  1. CLARITHROMYCIN 500MG RANBAX [Suspect]
     Indication: SINUSITIS
     Dosage: 500MG 2 TIMES A DAY
     Dates: start: 20080408, end: 20080414

REACTIONS (2)
  - ANXIETY [None]
  - HEADACHE [None]
